FAERS Safety Report 11809889 (Version 1)
Quarter: 2015Q4

REPORT INFORMATION
  Report Type: Spontaneous
  Country: US (occurrence: None)
  Receive Date: 20151207
  Receipt Date: 20151207
  Transmission Date: 20160305
  Serious: Yes (Other)
  Sender: FDA-Public Use
  Company Number: None

PATIENT
  Age: 19 Year
  Sex: Female
  Weight: 56.7 kg

DRUGS (5)
  1. PERIFLEX ADVANCE [Concomitant]
  2. AVENOVA NOVABAY [Suspect]
     Active Substance: HYPOCHLOROUS ACID
     Indication: BLEPHARITIS
     Dosage: TWICE DAILY APPLLIED TO EYELID/LASHES
     Dates: start: 20151130, end: 20151203
  3. ALAWAY [Concomitant]
     Active Substance: KETOTIFEN FUMARATE
  4. BENYDRYL [Concomitant]
  5. KUVAN [Concomitant]
     Active Substance: SAPROPTERIN DIHYDROCHLORIDE

REACTIONS (2)
  - Crying [None]
  - Hypersensitivity [None]

NARRATIVE: CASE EVENT DATE: 20151202
